FAERS Safety Report 9338131 (Version 1)
Quarter: 2013Q2

REPORT INFORMATION
  Report Type: Report from Study
  Country: FR (occurrence: FR)
  Receive Date: 20130610
  Receipt Date: 20130610
  Transmission Date: 20140414
  Serious: Yes (Death)
  Sender: FDA-Public Use
  Company Number: FR-ROCHE-1232368

PATIENT
  Sex: Female
  Weight: 71 kg

DRUGS (9)
  1. RITUXIMAB [Suspect]
     Indication: NEOPLASM MALIGNANT
     Dosage: QD
     Route: 042
     Dates: start: 20101007
  2. RITUXIMAB [Suspect]
     Dosage: QD (R-BEAM THERAPY)
     Route: 041
     Dates: start: 20110120
  3. CYTARABINE [Suspect]
     Indication: NEOPLASM MALIGNANT
     Dosage: QD
     Route: 042
     Dates: start: 20101004, end: 20101005
  4. CYTARABINE [Suspect]
     Route: 042
     Dates: start: 20110122, end: 20110125
  5. CISPLATIN [Suspect]
     Indication: NEOPLASM MALIGNANT
     Dosage: QD
     Route: 042
     Dates: start: 20101004
  6. DEXAMETHASONE [Suspect]
     Indication: NEOPLASM MALIGNANT
     Dosage: QD
     Route: 042
     Dates: start: 20101004, end: 20101007
  7. CARMUSTINE [Suspect]
     Indication: NEOPLASM MALIGNANT
     Dosage: QD
     Route: 041
     Dates: start: 20110121
  8. ETOPOSIDE [Suspect]
     Indication: NEOPLASM MALIGNANT
     Dosage: QD
     Route: 041
     Dates: start: 20110122, end: 20110125
  9. MELPHALAN [Suspect]
     Indication: NEOPLASM MALIGNANT
     Dosage: QD
     Route: 041
     Dates: start: 20110126

REACTIONS (2)
  - Thrombocytopenia [Fatal]
  - Subdural haematoma [Fatal]
